FAERS Safety Report 8587870 (Version 5)
Quarter: 2014Q2

REPORT INFORMATION
  Report Type: Spontaneous
  Country: US (occurrence: US)
  Receive Date: 20120531
  Receipt Date: 20140423
  Transmission Date: 20141212
  Serious: Yes (Hospitalization, Other)
  Sender: FDA-Public Use
  Company Number: US-ASTRAZENECA-2012SE33621

PATIENT
  Age: 63 Year
  Sex: Female

DRUGS (54)
  1. NEXIUM [Suspect]
     Indication: GASTROOESOPHAGEAL REFLUX DISEASE
     Route: 048
     Dates: start: 2004, end: 20081227
  2. NEXIUM [Suspect]
     Indication: HYPERCHLORHYDRIA
     Route: 048
     Dates: start: 2004, end: 20081227
  3. NEXIUM [Suspect]
     Indication: GASTROOESOPHAGEAL REFLUX DISEASE
     Route: 048
     Dates: start: 2005
  4. NEXIUM [Suspect]
     Indication: HYPERCHLORHYDRIA
     Route: 048
     Dates: start: 2005
  5. NEXIUM [Suspect]
     Indication: GASTROOESOPHAGEAL REFLUX DISEASE
     Route: 048
     Dates: start: 20051202
  6. NEXIUM [Suspect]
     Indication: HYPERCHLORHYDRIA
     Route: 048
     Dates: start: 20051202
  7. NEXIUM [Suspect]
     Indication: GASTROOESOPHAGEAL REFLUX DISEASE
     Route: 048
     Dates: start: 20050118
  8. NEXIUM [Suspect]
     Indication: HYPERCHLORHYDRIA
     Route: 048
     Dates: start: 20050118
  9. NEXIUM [Suspect]
     Indication: GASTROOESOPHAGEAL REFLUX DISEASE
     Route: 048
     Dates: start: 20090123
  10. NEXIUM [Suspect]
     Indication: HYPERCHLORHYDRIA
     Route: 048
     Dates: start: 20090123
  11. NEXIUM [Suspect]
     Indication: GASTROOESOPHAGEAL REFLUX DISEASE
     Route: 048
     Dates: start: 20081227
  12. NEXIUM [Suspect]
     Indication: HYPERCHLORHYDRIA
     Route: 048
     Dates: start: 20081227
  13. AMBIEN [Concomitant]
     Dates: start: 20041116
  14. AMITRIPTYLINE HCL [Concomitant]
     Dates: start: 20041223
  15. AMITRIPTYLINE HCL [Concomitant]
     Route: 048
     Dates: start: 20081229
  16. HYDROCODONE APAP [Concomitant]
     Dosage: 5/500
     Dates: start: 20041230
  17. HYDROCODONE APAP [Concomitant]
     Dosage: 7.5/325
     Dates: start: 20050203
  18. TIZANIDINE HCL [Concomitant]
     Dates: start: 20050203
  19. ZITHROMAX [Concomitant]
     Dates: start: 20050208
  20. HYDROCHLOROTHIAZIDE [Concomitant]
     Dates: start: 20050414
  21. SEROQUEL [Concomitant]
     Dates: start: 20050419
  22. PROMETHAZINE [Concomitant]
     Dates: start: 20050516
  23. CYMBALTA [Concomitant]
     Dates: start: 20050606
  24. CYMBALTA [Concomitant]
     Dates: start: 20050615
  25. COREG [Concomitant]
     Dates: start: 20050805
  26. MORPHINE SULPHATE IR [Concomitant]
     Dates: start: 20050628
  27. MORPHINE SULPHATE IR [Concomitant]
     Dates: start: 20050708
  28. ESTROGEN THERAPY [Concomitant]
  29. SYNTHROID [Concomitant]
     Dates: start: 2008
  30. SYNTHROID [Concomitant]
     Route: 048
     Dates: start: 20081229
  31. NEURONTIN [Concomitant]
     Dates: start: 20090123
  32. LEXAPRO [Concomitant]
     Dates: start: 20090123
  33. BYSTOLIC [Concomitant]
     Dates: start: 20090123
  34. LASIX [Concomitant]
     Dates: start: 20090123
  35. SPIRIVA [Concomitant]
     Dates: start: 20090123
  36. CELEBREX [Concomitant]
     Dates: start: 20090123
  37. DIFLUCAN [Concomitant]
     Dates: start: 20090123
  38. MORPHINE [Concomitant]
     Route: 048
     Dates: start: 20081227
  39. MORPHINE [Concomitant]
     Dosage: EXTENDED RELEASE 30 MG TWICE DAILY AND IMMEDIATE RELEASE
     Dates: start: 20090123
  40. TUMS [Concomitant]
     Dosage: AS NEEDED 3 750 MG TABLETS AT A TIME, NO MORE THAN 2X A DAY
  41. VITAMIN D [Concomitant]
  42. VITAMIN C [Concomitant]
  43. ESTROGEN CREME [Concomitant]
     Dosage: EVERY OTHER NIGHT
  44. LACIMICTAL [Concomitant]
  45. PREMARIN [Concomitant]
     Dates: start: 20050813
  46. TAMIFLU [Concomitant]
     Dates: start: 20060218
  47. TOPROL XL [Concomitant]
     Dates: start: 20051123
  48. CELECOXIB [Concomitant]
  49. ALPRAZOLAM [Concomitant]
     Dates: start: 20070625
  50. ABILIFY [Concomitant]
     Dates: start: 20090618
  51. WARFARIN SODIUM [Concomitant]
     Dates: start: 20090813
  52. ACYCLOVIR [Concomitant]
     Dates: start: 20100602
  53. AVINZA [Concomitant]
     Dates: start: 20100306
  54. PROTONIX [Concomitant]
     Route: 048
     Dates: start: 20081228

REACTIONS (14)
  - Hip fracture [Unknown]
  - Fall [Unknown]
  - Lung disorder [Unknown]
  - Back disorder [Unknown]
  - Gallbladder disorder [Unknown]
  - Musculoskeletal disorder [Unknown]
  - Femur fracture [Unknown]
  - Osteoarthritis [Unknown]
  - Arthritis [Unknown]
  - Intervertebral disc degeneration [Unknown]
  - Lumbar spinal stenosis [Unknown]
  - Intervertebral disc protrusion [Unknown]
  - Osteoporosis [Unknown]
  - Cervical myelopathy [Unknown]
